FAERS Safety Report 25158152 (Version 1)
Quarter: 2025Q2

REPORT INFORMATION
  Report Type: Spontaneous
  Country: SG (occurrence: SG)
  Receive Date: 20250404
  Receipt Date: 20250404
  Transmission Date: 20250716
  Serious: Yes (Other)
  Sender: AMGEN
  Company Number: SG-002147023-NVSC2025SG049230

PATIENT

DRUGS (1)
  1. AIMOVIG [Suspect]
     Active Substance: ERENUMAB-AOOE
     Indication: Migraine
     Route: 065

REACTIONS (4)
  - Hepatic function abnormal [Unknown]
  - Weight increased [Unknown]
  - Migraine [Unknown]
  - Therapeutic response decreased [Unknown]
